FAERS Safety Report 14012587 (Version 1)
Quarter: 2017Q3

REPORT INFORMATION
  Report Type: Spontaneous
  Country: FR (occurrence: FR)
  Receive Date: 20170926
  Receipt Date: 20170926
  Transmission Date: 20171128
  Serious: Yes (Hospitalization)
  Sender: FDA-Public Use
  Company Number: FR-PURDUE PHARMA-GBR-2017-0049117

PATIENT

DRUGS (15)
  1. ALPRAZOLAM. [Concomitant]
     Active Substance: ALPRAZOLAM
     Dosage: 0.25 MG, DAILY
  2. CANDESARTAN. [Concomitant]
     Active Substance: CANDESARTAN
     Dosage: 32 MG, DAILY
  3. NICARDIPINE [Concomitant]
     Active Substance: NICARDIPINE
     Dosage: 50 MG, BID
  4. LEVOTHYROX [Concomitant]
     Active Substance: LEVOTHYROXINE
     Dosage: 75 MCG, DAILY
  5. OXYCONTIN [Suspect]
     Active Substance: OXYCODONE HYDROCHLORIDE
     Indication: PAIN
     Dosage: 20 MG, BID
     Route: 048
     Dates: start: 20110921
  6. PAROXETINE. [Concomitant]
     Active Substance: PAROXETINE
     Dosage: 10 MG, DAILY
  7. SPAGULAX [Concomitant]
     Active Substance: PLANTAGO OVATA SEED
  8. MESTINON [Concomitant]
     Active Substance: PYRIDOSTIGMINE BROMIDE
     Dosage: 60 MG, BID
  9. VENTOLINE                          /00139501/ [Concomitant]
     Active Substance: ALBUTEROL
  10. OROCAL                             /00751519/ [Concomitant]
     Active Substance: CALCIUM CARBONATE
     Dosage: 1 DF, DAILY
  11. BILASTINE [Concomitant]
     Active Substance: BILASTINE
     Dosage: 20 MG, DAILY
  12. RALOXIFENE. [Concomitant]
     Active Substance: RALOXIFENE
     Dosage: 60 MG, DAILY
  13. NOCERTONE [Concomitant]
     Active Substance: OXETORONE
     Dosage: 60 MG, DAILY
  14. MOVICOL [Concomitant]
     Active Substance: POLYETHYLENE GLYCOL 3350\POTASSIUM CHLORIDE\SODIUM BICARBONATE\SODIUM CHLORIDE
     Dosage: 4 DF, DAILY
  15. OXYNORM [Suspect]
     Active Substance: OXYCODONE HYDROCHLORIDE
     Indication: PAIN
     Dosage: 10 MG, BID
     Route: 048
     Dates: start: 20110921, end: 20170731

REACTIONS (1)
  - Hypoventilation [Recovered/Resolved]

NARRATIVE: CASE EVENT DATE: 20170720
